FAERS Safety Report 23381538 (Version 2)
Quarter: 2024Q1

REPORT INFORMATION
  Report Type: Spontaneous
  Country: FR (occurrence: FR)
  Receive Date: 20240109
  Receipt Date: 20240124
  Transmission Date: 20240409
  Serious: Yes (Other)
  Sender: FDA-Public Use
  Company Number: FR-GSKCCFEMEA-Case-01878031_AE-78584

PATIENT
  Age: 92 Year
  Sex: Male
  Weight: 61 kg

DRUGS (7)
  1. CLOPIDOGREL [Suspect]
     Active Substance: CLOPIDOGREL BISULFATE
     Indication: Product used for unknown indication
     Dosage: 75 MILLIGRAM, ONCE A DAY
     Route: 065
  2. LAMICTAL [Suspect]
     Active Substance: LAMOTRIGINE
     Indication: Product used for unknown indication
     Dosage: 125 MILLIGRAM, ONCE A DAY (MORNING)
     Route: 065
  3. LAMICTAL [Suspect]
     Active Substance: LAMOTRIGINE
     Dosage: 100 MILLIGRAM
     Route: 065
  4. LAMICTAL [Suspect]
     Active Substance: LAMOTRIGINE
     Dosage: 100 MILLIGRAM
     Route: 065
  5. REFRESH CLASSIC [Suspect]
     Active Substance: POLYVINYL ALCOHOL\POVIDONE
     Indication: Product used for unknown indication
     Dosage: UNK 1 DROP 3 TO 4 TIMES
     Route: 065
  6. DICLOFENAC DIETHYLAMINE [Suspect]
     Active Substance: DICLOFENAC DIETHYLAMINE
     Indication: Product used for unknown indication
     Dosage: UNK
     Route: 065
  7. CHOLECALCIFEROL [Suspect]
     Active Substance: CHOLECALCIFEROL
     Indication: Product used for unknown indication
     Dosage: UNK
     Route: 065

REACTIONS (24)
  - Urinary retention [Unknown]
  - Hallucination [Unknown]
  - Vision blurred [Unknown]
  - Oral discomfort [Unknown]
  - Fatigue [Unknown]
  - Erythema [Unknown]
  - Musculoskeletal chest pain [Unknown]
  - Haemorrhage [Unknown]
  - Dyspepsia [Unknown]
  - Stomatitis [Unknown]
  - Diplopia [Unknown]
  - Back pain [Unknown]
  - Aggression [Not Recovered/Not Resolved]
  - Weight decreased [Unknown]
  - Tooth disorder [Unknown]
  - Insomnia [Unknown]
  - Confusional state [Unknown]
  - Asthenia [Unknown]
  - Abnormal faeces [Unknown]
  - Myalgia [Unknown]
  - Pruritus [Unknown]
  - Tinnitus [Unknown]
  - Rash [Unknown]
  - Amnesia [Recovered/Resolved]

NARRATIVE: CASE EVENT DATE: 20231201
